FAERS Safety Report 9999204 (Version 3)
Quarter: 2014Q2

REPORT INFORMATION
  Report Type: Spontaneous
  Country: IT (occurrence: None)
  Receive Date: 20140310
  Receipt Date: 20140613
  Transmission Date: 20141212
  Serious: Yes (Other)
  Sender: FDA-Public Use
  Company Number: 2215464

PATIENT
  Age: 60 Year
  Sex: Female

DRUGS (1)
  1. OXALIPLATIN [Suspect]
     Indication: COLON CANCER
     Dosage: (NOT OTHERWISE SPECIFIED)?TOTAL
     Route: 042
     Dates: start: 20140219, end: 20140219

REACTIONS (5)
  - Pruritus generalised [None]
  - Feeling hot [None]
  - Erythema [None]
  - Throat tightness [None]
  - Chest discomfort [None]
